FAERS Safety Report 7652091-2 (Version None)
Quarter: 2011Q3

REPORT INFORMATION
  Report Type: 
  Country: None (occurrence: None)
  Receive Date: 20110803
  Receipt Date: 20110611
  Transmission Date: 20111222
  Serious: Yes (Other)
  Sender: FDA-Public Use
  Company Number: GB-BAYER-2011-052929

PATIENT
  Age: 30 Year
  Sex: Female
  Weight: 63 kg

DRUGS (1)
  1. CLOTRIMAZOLE [Suspect]
     Dosage: UNK
     Dates: start: 20110609, end: 20110609

REACTIONS (1)
  - GENITAL HAEMORRHAGE [None]
